FAERS Safety Report 23711714 (Version 2)
Quarter: 2025Q1

REPORT INFORMATION
  Report Type: Spontaneous
  Country: US (occurrence: None)
  Receive Date: 20240405
  Receipt Date: 20250328
  Transmission Date: 20250409
  Serious: No
  Sender: AXSOME THERAPEUTICS, INC.
  Company Number: US-ARIS GLOBAL-AXS202305-000716

PATIENT
  Age: 65 Year
  Sex: Male

DRUGS (10)
  1. SUNOSI [Suspect]
     Active Substance: SOLRIAMFETOL
     Indication: Somnolence
     Dosage: 1 TABLET AS NEEDED
     Route: 048
     Dates: start: 202302
  2. SUNOSI [Suspect]
     Active Substance: SOLRIAMFETOL
     Indication: Sleep apnoea syndrome
     Dosage: 1 TABLET AS NEEDED
     Route: 048
  3. SUNOSI [Suspect]
     Active Substance: SOLRIAMFETOL
     Indication: Obstructive sleep apnoea syndrome
  4. ROSUVASTATIN [Concomitant]
     Active Substance: ROSUVASTATIN
     Indication: Product used for unknown indication
     Route: 065
  5. CLONAZEPAM [Concomitant]
     Active Substance: CLONAZEPAM
     Indication: Anxiety
     Route: 065
  6. TESTOSTERONE [Concomitant]
     Active Substance: TESTOSTERONE
     Indication: Product used for unknown indication
     Route: 065
  7. LEXAPRO [Concomitant]
     Active Substance: ESCITALOPRAM OXALATE
     Indication: Depression
     Route: 065
  8. PAXIL [Concomitant]
     Active Substance: PAROXETINE HYDROCHLORIDE
     Indication: Obstructive sleep apnoea syndrome
     Route: 065
  9. PROZAC [Concomitant]
     Active Substance: FLUOXETINE HYDROCHLORIDE
     Indication: Obstructive sleep apnoea syndrome
     Route: 065
  10. MODAFINIL [Concomitant]
     Active Substance: MODAFINIL
     Indication: Obstructive sleep apnoea syndrome
     Route: 065

REACTIONS (5)
  - Fatigue [Unknown]
  - Therapeutic product effect variable [Unknown]
  - Therapeutic product effect decreased [Unknown]
  - Therapeutic response unexpected [Unknown]
  - Treatment noncompliance [Unknown]

NARRATIVE: CASE EVENT DATE: 20230101
